FAERS Safety Report 15343758 (Version 3)
Quarter: 2019Q1

REPORT INFORMATION
  Report Type: Report from Study
  Country: JP (occurrence: JP)
  Receive Date: 20180903
  Receipt Date: 20190313
  Transmission Date: 20190417
  Serious: Yes (Hospitalization, Other)
  Sender: FDA-Public Use
  Company Number: JP-BIOGEN-2018BI00519633

PATIENT
  Age: 3 Year
  Sex: Male
  Weight: 10.4 kg

DRUGS (44)
  1. ISOZOL [Concomitant]
     Active Substance: THIAMYLAL SODIUM
     Dosage: ABOUT 50 MG / DAY
     Route: 050
     Dates: start: 20180314, end: 20180314
  2. SINGULAIR [Concomitant]
     Active Substance: MONTELUKAST SODIUM
     Indication: SPINAL MUSCULAR ATROPHY
     Dosage: 1 PACKET PER DOSE (1 PACKET PER DAY)
     Route: 050
     Dates: start: 20170912
  3. MEPTIN [Concomitant]
     Active Substance: PROCATEROL HYDROCHLORIDE
     Indication: SPINAL MUSCULAR ATROPHY
     Route: 050
     Dates: start: 20170912
  4. SPINRAZA [Suspect]
     Active Substance: NUSINERSEN
     Route: 050
     Dates: start: 20180725, end: 20180725
  5. SULBACILLIN [Concomitant]
     Active Substance: AMPICILLIN SODIUM\SULBACTAM SODIUM
     Indication: PROPHYLAXIS
     Route: 050
     Dates: start: 20170920, end: 20170920
  6. SULBACILLIN [Concomitant]
     Active Substance: AMPICILLIN SODIUM\SULBACTAM SODIUM
     Route: 050
     Dates: start: 20171018, end: 20171018
  7. INTAL [Concomitant]
     Active Substance: CROMOLYN SODIUM
     Indication: SPINAL MUSCULAR ATROPHY
     Route: 050
     Dates: start: 20170912
  8. SPINRAZA [Suspect]
     Active Substance: NUSINERSEN
     Route: 050
     Dates: start: 20171004, end: 20171004
  9. SPINRAZA [Suspect]
     Active Substance: NUSINERSEN
     Route: 050
     Dates: start: 20171018, end: 20171018
  10. ISOZOL [Concomitant]
     Active Substance: THIAMYLAL SODIUM
     Dosage: ABOUT 50 MG / DAY
     Route: 050
     Dates: start: 20171122, end: 20171122
  11. ISOZOL [Concomitant]
     Active Substance: THIAMYLAL SODIUM
     Dosage: ABOUT 50 MG / DAY
     Route: 050
     Dates: start: 20180725, end: 20180725
  12. ISOZOL [Concomitant]
     Active Substance: THIAMYLAL SODIUM
     Dosage: ABOUT 50 MG / DAY
     Route: 050
     Dates: start: 20181122, end: 20181122
  13. SOSEGON [Concomitant]
     Active Substance: PENTAZOCINE
     Dosage: ABOUT 5 MG / DAY
     Route: 050
     Dates: start: 20181122, end: 20181122
  14. XYZAL [Concomitant]
     Active Substance: LEVOCETIRIZINE DIHYDROCHLORIDE
     Indication: SPINAL MUSCULAR ATROPHY
     Route: 050
     Dates: start: 20170912
  15. CLARITHROMYCIN. [Concomitant]
     Active Substance: CLARITHROMYCIN
     Indication: SPINAL MUSCULAR ATROPHY
     Route: 050
     Dates: start: 20170912
  16. GLYCERIN. [Concomitant]
     Active Substance: GLYCERIN
     Indication: SPINAL MUSCULAR ATROPHY
     Route: 050
     Dates: start: 20170912
  17. ISOZOL [Concomitant]
     Active Substance: THIAMYLAL SODIUM
     Dosage: ABOUT 50 MG / DAY
     Route: 050
     Dates: start: 20171018, end: 20171018
  18. SOSEGON [Concomitant]
     Active Substance: PENTAZOCINE
     Indication: ANAESTHESIA PROCEDURE
     Dosage: ABOUT 5 MG / DAY
     Route: 050
     Dates: start: 20170920, end: 20170920
  19. SOSEGON [Concomitant]
     Active Substance: PENTAZOCINE
     Dosage: ABOUT 5 MG / DAY
     Route: 050
     Dates: start: 20171122, end: 20171122
  20. SULBACILLIN [Concomitant]
     Active Substance: AMPICILLIN SODIUM\SULBACTAM SODIUM
     Route: 050
     Dates: start: 20171122, end: 20171122
  21. CLARITHROMYCIN. [Concomitant]
     Active Substance: CLARITHROMYCIN
     Route: 050
  22. MAGNESIUM OXIDE. [Concomitant]
     Active Substance: MAGNESIUM OXIDE
     Indication: SPINAL MUSCULAR ATROPHY
     Route: 050
     Dates: start: 20170912
  23. TSUMURA DAIKENCHUTO EXTRACT GRANULES FOR ETHICAL USE [Concomitant]
     Active Substance: HERBALS
     Indication: SPINAL MUSCULAR ATROPHY
     Route: 050
     Dates: start: 20170912
  24. ISOZOL [Concomitant]
     Active Substance: THIAMYLAL SODIUM
     Indication: ANAESTHESIA PROCEDURE
     Dosage: ABOUT 50 MG / DAY
     Route: 050
     Dates: start: 20170920, end: 20170920
  25. SOSEGON [Concomitant]
     Active Substance: PENTAZOCINE
     Dosage: ABOUT 5 MG / DAY
     Route: 050
     Dates: start: 20171018, end: 20171018
  26. SULBACILLIN [Concomitant]
     Active Substance: AMPICILLIN SODIUM\SULBACTAM SODIUM
     Route: 050
     Dates: start: 20171004, end: 20171004
  27. PULMICORT TURBUHALER [Concomitant]
     Active Substance: BUDESONIDE
     Indication: SPINAL MUSCULAR ATROPHY
     Route: 050
     Dates: start: 20170912
  28. SOSEGON [Concomitant]
     Active Substance: PENTAZOCINE
     Dosage: ABOUT 5 MG / DAY
     Route: 050
     Dates: start: 20171004, end: 20171004
  29. SOSEGON [Concomitant]
     Active Substance: PENTAZOCINE
     Dosage: ABOUT 5 MG / DAY
     Route: 050
     Dates: start: 20180314, end: 20180314
  30. CARBOCISTEINE [Concomitant]
     Active Substance: CARBOCYSTEINE
     Route: 050
  31. AMBROXOL HYDROCHLORIDE [Concomitant]
     Active Substance: AMBROXOL HYDROCHLORIDE
     Route: 050
  32. SPINRAZA [Suspect]
     Active Substance: NUSINERSEN
     Route: 050
     Dates: start: 20181122, end: 20181122
  33. ISOZOL [Concomitant]
     Active Substance: THIAMYLAL SODIUM
     Dosage: ABOUT 50 MG / DAY
     Route: 050
     Dates: start: 20171004, end: 20171004
  34. SULBACILLIN [Concomitant]
     Active Substance: AMPICILLIN SODIUM\SULBACTAM SODIUM
     Route: 050
     Dates: start: 20180314, end: 20180314
  35. SULBACILLIN [Concomitant]
     Active Substance: AMPICILLIN SODIUM\SULBACTAM SODIUM
     Route: 050
     Dates: start: 20180725, end: 20180725
  36. SULBACILLIN [Concomitant]
     Active Substance: AMPICILLIN SODIUM\SULBACTAM SODIUM
     Route: 050
     Dates: start: 20181122, end: 20181122
  37. CARBOCISTEINE [Concomitant]
     Active Substance: CARBOCYSTEINE
     Indication: SPINAL MUSCULAR ATROPHY
     Route: 050
     Dates: start: 20170912
  38. TSUMURA HANGEKOBOKUTO EXTRACT GRANULES FOR ETHICAL USE [Concomitant]
     Indication: SPINAL MUSCULAR ATROPHY
     Route: 050
     Dates: start: 20170912
  39. SPINRAZA [Suspect]
     Active Substance: NUSINERSEN
     Indication: SPINAL MUSCULAR ATROPHY
     Route: 050
     Dates: start: 20170920, end: 20170920
  40. SPINRAZA [Suspect]
     Active Substance: NUSINERSEN
     Route: 050
     Dates: start: 20171122, end: 20171122
  41. SOSEGON [Concomitant]
     Active Substance: PENTAZOCINE
     Dosage: ABOUT 5 MG / DAY
     Route: 050
     Dates: start: 20180725, end: 20180725
  42. AMBROXOL HYDROCHLORIDE [Concomitant]
     Active Substance: AMBROXOL HYDROCHLORIDE
     Indication: SPINAL MUSCULAR ATROPHY
     Route: 050
     Dates: start: 20170912
  43. MEPTIN [Concomitant]
     Active Substance: PROCATEROL HYDROCHLORIDE
     Indication: SPINAL MUSCULAR ATROPHY
     Route: 050
     Dates: start: 20170912
  44. SPINRAZA [Suspect]
     Active Substance: NUSINERSEN
     Route: 050
     Dates: start: 20180314, end: 20180314

REACTIONS (7)
  - Respiratory failure [Recovered/Resolved]
  - Pneumonia [Recovered/Resolved]
  - Pneumonia [Recovered/Resolved]
  - Pneumonia [Unknown]
  - Pneumonia [Recovered/Resolved]
  - Pyrexia [Recovered/Resolved]
  - Pneumonia [Recovered/Resolved]

NARRATIVE: CASE EVENT DATE: 20171110
